FAERS Safety Report 25733403 (Version 1)
Quarter: 2025Q3

REPORT INFORMATION
  Report Type: Spontaneous
  Country: US (occurrence: US)
  Receive Date: 20250828
  Receipt Date: 20250828
  Transmission Date: 20251020
  Serious: No
  Sender: CELLTRION
  Company Number: US-CELLTRION INC.-2025US020297

PATIENT

DRUGS (3)
  1. YUFLYMA [Suspect]
     Active Substance: ADALIMUMAB-AATY
     Indication: Colitis ulcerative
     Dates: start: 20250619
  2. YUFLYMA [Suspect]
     Active Substance: ADALIMUMAB-AATY
     Dosage: 80 MG ONCE EVERY OTHER WEEK FOR 2 WEEKS
     Route: 058
     Dates: start: 20250620
  3. YUFLYMA [Suspect]
     Active Substance: ADALIMUMAB-AATY
     Dosage: 40MG, ONCE EVERY OTHER WEEK/40MG/0.4ML AUTO-INJECTOR KIT ADMINISTER 1 PEN EVERY OTHER WEEK
     Route: 058

REACTIONS (5)
  - Device malfunction [Unknown]
  - Product distribution issue [Not Recovered/Not Resolved]
  - Exposure via skin contact [Unknown]
  - Accidental exposure to product [Unknown]
  - Therapy interrupted [Not Recovered/Not Resolved]

NARRATIVE: CASE EVENT DATE: 20250703
